FAERS Safety Report 4544857-2 (Version None)
Quarter: 2005Q1

REPORT INFORMATION
  Report Type: 
  Country: None (occurrence: None)
  Receive Date: 20050105
  Receipt Date: 20041227
  Transmission Date: 20050727
  Serious: Yes (Death, Other)
  Sender: FDA-Public Use
  Company Number: JP-BRISTOL-MYERS SQUIBB COMPANY-12805651

PATIENT
  Age: 55 Year
  Sex: Male

DRUGS (3)
  1. BRIPLATIN [Suspect]
     Indication: GUM NEOPLASM MALIGNANT STAGE UNSPECIFIED
     Dosage: INITIATED 29-MAR-2004
     Route: 013
     Dates: start: 20040405, end: 20040405
  2. DECADRON [Suspect]
     Dosage: INITIATED 29-MAR-2004
     Route: 042
     Dates: start: 20040405, end: 20040405
  3. SODIUM THIOSULFATE [Concomitant]
     Route: 042
     Dates: start: 20040329, end: 20040405

REACTIONS (3)
  - GUM NEOPLASM MALIGNANT STAGE UNSPECIFIED [None]
  - MALIGNANT NEOPLASM PROGRESSION [None]
  - STOMATITIS [None]
